FAERS Safety Report 19363372 (Version 2)
Quarter: 2024Q1

REPORT INFORMATION
  Report Type: Spontaneous
  Country: FR (occurrence: None)
  Receive Date: 20210603
  Receipt Date: 20240202
  Transmission Date: 20240410
  Serious: Yes (Hospitalization)
  Sender: FDA-Public Use
  Company Number: 2021A483509

PATIENT
  Age: 72 Year
  Sex: Female
  Weight: 65 kg

DRUGS (2)
  1. ESOMEPRAZOLE [Suspect]
     Active Substance: ESOMEPRAZOLE
     Indication: Prophylaxis
     Dosage: 20.0MG UNKNOWN
     Route: 048
     Dates: end: 20210413
  2. PANTOPRAZOLE [Suspect]
     Active Substance: PANTOPRAZOLE
     Indication: Prophylaxis
     Dosage: 20.0MG UNKNOWN
     Route: 048
     Dates: start: 20210413

REACTIONS (1)
  - Eosinophilia [Not Recovered/Not Resolved]

NARRATIVE: CASE EVENT DATE: 20210416
